FAERS Safety Report 20963254 (Version 3)
Quarter: 2022Q4

REPORT INFORMATION
  Report Type: Spontaneous
  Country: US (occurrence: US)
  Receive Date: 20220615
  Receipt Date: 20221102
  Transmission Date: 20230112
  Serious: Yes (Other)
  Sender: FDA-Public Use
  Company Number: US-NOVARTISPH-NVSC2022US131974

PATIENT
  Sex: Female

DRUGS (1)
  1. TABRECTA [Suspect]
     Active Substance: CAPMATINIB
     Indication: Metastatic neoplasm
     Dosage: UNK
     Route: 048
     Dates: start: 20220522

REACTIONS (3)
  - Lip and/or oral cavity cancer [Unknown]
  - Product use complaint [Unknown]
  - Product use in unapproved indication [Unknown]
